FAERS Safety Report 22818803 (Version 3)
Quarter: 2025Q1

REPORT INFORMATION
  Report Type: Report from Study
  Country: US (occurrence: US)
  Receive Date: 20230814
  Receipt Date: 20250113
  Transmission Date: 20250408
  Serious: Yes (Other)
  Sender: ROCHE
  Company Number: US-ROCHE-3403635

PATIENT
  Age: 79 Year
  Sex: Female

DRUGS (1)
  1. ALECENSA [Suspect]
     Active Substance: ALECTINIB HYDROCHLORIDE
     Indication: Lung neoplasm malignant
     Dosage: TAKE 4 CAPSULES BY MOUTH TWICE A DAY.
     Route: 048

REACTIONS (4)
  - Pain [Unknown]
  - Hypersomnia [Unknown]
  - Deafness [Unknown]
  - Neoplasm malignant [Unknown]
